FAERS Safety Report 8585204-9 (Version None)
Quarter: 2012Q3

REPORT INFORMATION
  Report Type: 
  Country: None (occurrence: None)
  Receive Date: 20120810
  Receipt Date: 20120807
  Transmission Date: 20120928
  Serious: Yes (Life-Threatening)
  Sender: FDA-Public Use
  Company Number: PHHO2012CA004396

PATIENT
  Sex: Female

DRUGS (4)
  1. BLINDED NO TREATMENT RECEIVED [Suspect]
     Indication: METASTATIC CARCINOID TUMOUR
     Dosage: DOUBLE BLIND
     Route: 030
     Dates: start: 20110601, end: 20111201
  2. BLINDED SOM230 [Suspect]
     Indication: METASTATIC CARCINOID TUMOUR
     Dosage: DOUBLE BLIND
     Route: 030
     Dates: start: 20110601, end: 20111201
  3. SANDOSTATIN [Suspect]
     Indication: METASTATIC CARCINOID TUMOUR
     Dosage: DOUBLE BLIND
     Route: 030
     Dates: start: 20110601, end: 20111201
  4. SANDOSTATIN LAR [Suspect]
     Indication: METASTATIC CARCINOID TUMOUR
     Dosage: 40 MG, QMO (EVERY 4 WEEKS)
     Route: 030
     Dates: start: 20090706, end: 20111213

REACTIONS (4)
  - DIARRHOEA [None]
  - HYPOTENSION [None]
  - HEADACHE [None]
  - NAUSEA [None]
